FAERS Safety Report 4763257-3 (Version None)
Quarter: 2005Q3

REPORT INFORMATION
  Report Type: 
  Country: None (occurrence: None)
  Receive Date: 20050908
  Receipt Date: 20050830
  Transmission Date: 20060218
  Serious: Yes (Hospitalization, Other)
  Sender: FDA-Public Use
  Company Number: US-JNJFOC-20050806786

PATIENT
  Sex: Male

DRUGS (7)
  1. REMICADE [Suspect]
     Indication: RHEUMATOID ARTHRITIS
     Dosage: Q 6 - 8 WEEKS
     Route: 042
  2. VERAPAMIL [Concomitant]
  3. LISINOPRIL [Concomitant]
  4. ZOLOFT [Concomitant]
  5. FOLIC ACID [Concomitant]
  6. RHEUMATREX [Concomitant]
  7. PREDNISONE [Concomitant]

REACTIONS (1)
  - MALIGNANT MELANOMA OF SITES OTHER THAN SKIN [None]
